FAERS Safety Report 17014130 (Version 4)
Quarter: 2025Q3

REPORT INFORMATION
  Report Type: Spontaneous
  Country: EU (occurrence: EU)
  Receive Date: 20191111
  Receipt Date: 20250701
  Transmission Date: 20251020
  Serious: Yes (Death)
  Sender: AUROBINDO
  Company Number: None

PATIENT
  Age: 34 Week
  Sex: Female

DRUGS (13)
  1. LEVETIRACETAM [Suspect]
     Active Substance: LEVETIRACETAM
     Indication: Status epilepticus
     Route: 065
  2. KETAMINE [Suspect]
     Active Substance: KETAMINE
     Indication: Status epilepticus
     Route: 065
  3. KETAMINE [Suspect]
     Active Substance: KETAMINE
     Route: 065
  4. KETAMINE [Suspect]
     Active Substance: KETAMINE
     Route: 065
  5. KETAMINE [Suspect]
     Active Substance: KETAMINE
     Route: 042
  6. KETAMINE [Suspect]
     Active Substance: KETAMINE
     Route: 040
  7. KETAMINE [Suspect]
     Active Substance: KETAMINE
     Route: 040
  8. MIDAZOLAM [Suspect]
     Active Substance: MIDAZOLAM
     Indication: Status epilepticus
     Route: 065
  9. MIDAZOLAM [Suspect]
     Active Substance: MIDAZOLAM
     Route: 065
  10. PHENOBARBITAL [Suspect]
     Active Substance: PHENOBARBITAL
     Indication: Status epilepticus
     Route: 065
  11. CARBAMAZEPINE [Suspect]
     Active Substance: CARBAMAZEPINE
     Indication: Status epilepticus
     Dosage: 35.5 MILLIGRAM/KILOGRAM, ONCE A DAY
     Route: 065
  12. PHENYTOIN [Suspect]
     Active Substance: PHENYTOIN
     Indication: Status epilepticus
     Route: 065
  13. PROPOFOL [Suspect]
     Active Substance: PROPOFOL
     Indication: Status epilepticus
     Route: 065

REACTIONS (1)
  - Drug ineffective [Fatal]
